FAERS Safety Report 6034642-7 (Version None)
Quarter: 2009Q1

REPORT INFORMATION
  Report Type: 
  Country: None (occurrence: None)
  Receive Date: 20090109
  Receipt Date: 20090109
  Transmission Date: 20090719
  Serious: No
  Sender: FDA-Public Use
  Company Number: None

PATIENT
  Sex: Male

DRUGS (9)
  1. ZOMETA [Suspect]
     Indication: PROSTATE CANCER
     Dosage: 4 MG Q 3 WEEKS IV
     Route: 042
     Dates: start: 20011001, end: 20040301
  2. CHEMOTHERAPY FOR LYMPHOMA [Concomitant]
  3. DEXAMETHASONE [Concomitant]
  4. COUMADIN [Concomitant]
  5. SOTALOL HCL [Concomitant]
  6. ZOCOR [Concomitant]
  7. ACTOS [Concomitant]
  8. EFFEXOR [Concomitant]
  9. VIT E [Concomitant]

REACTIONS (2)
  - GINGIVITIS [None]
  - JAW DISORDER [None]
